FAERS Safety Report 17243958 (Version 3)
Quarter: 2020Q1

REPORT INFORMATION
  Report Type: Report from Study
  Country: CA (occurrence: CA)
  Receive Date: 20200107
  Receipt Date: 20200312
  Transmission Date: 20200409
  Serious: Yes (Other)
  Sender: FDA-Public Use
  Company Number: CA-JNJFOC-20190913271

PATIENT
  Age: 48 Year
  Sex: Female

DRUGS (2)
  1. SIMPONI [Suspect]
     Active Substance: GOLIMUMAB
     Route: 058
     Dates: start: 20190517
  2. SIMPONI [Suspect]
     Active Substance: GOLIMUMAB
     Indication: RHEUMATOID ARTHRITIS
     Route: 058
     Dates: start: 20190517

REACTIONS (7)
  - Emphysema [Not Recovered/Not Resolved]
  - Fibromyalgia [Unknown]
  - Pneumothorax [Not Recovered/Not Resolved]
  - Product use issue [Unknown]
  - Rheumatoid arthritis [Unknown]
  - Influenza [Not Recovered/Not Resolved]
  - Off label use [Unknown]

NARRATIVE: CASE EVENT DATE: 20190517
